FAERS Safety Report 17769032 (Version 1)
Quarter: 2020Q2

REPORT INFORMATION
  Report Type: Spontaneous
  Country: US (occurrence: US)
  Receive Date: 20200512
  Receipt Date: 20200512
  Transmission Date: 20200714
  Serious: No
  Sender: FDA-Public Use
  Company Number: US-BIOVITRUM-2019US3030

PATIENT
  Sex: Female
  Weight: 13 kg

DRUGS (3)
  1. CLARITIN [Concomitant]
     Active Substance: LORATADINE
     Indication: PRODUCT USED FOR UNKNOWN INDICATION
  2. MULTIVITAMIN [Concomitant]
     Active Substance: VITAMINS
     Indication: PRODUCT USED FOR UNKNOWN INDICATION
  3. KINERET [Suspect]
     Active Substance: ANAKINRA
     Indication: HYPER IGD SYNDROME

REACTIONS (4)
  - Urticaria [Unknown]
  - Off label use [Unknown]
  - Injection site bruising [Unknown]
  - Discomfort [Unknown]
